FAERS Safety Report 4812962-9 (Version None)
Quarter: 2005Q4

REPORT INFORMATION
  Report Type: 
  Country: None (occurrence: None)
  Receive Date: 20051028
  Receipt Date: 20050524
  Transmission Date: 20060501
  Serious: Yes (Other)
  Sender: FDA-Public Use
  Company Number: US-GLAXOSMITHKLINE-A0559928A

PATIENT
  Sex: Male

DRUGS (3)
  1. ADVAIR DISKUS 100/50 [Suspect]
     Indication: ASTHMA
     Dosage: 1PUFF PER DAY
     Route: 055
  2. SEREVENT [Suspect]
     Indication: ASTHMA
     Dosage: 1PUFF PER DAY
     Route: 055
  3. VENTOLIN [Suspect]
     Indication: ASTHMA
     Dosage: 200MCG AS REQUIRED
     Route: 055

REACTIONS (6)
  - ASTHMA [None]
  - DRUG ADMINISTRATION ERROR [None]
  - DYSPHAGIA [None]
  - DYSPNOEA [None]
  - POOR QUALITY DRUG ADMINISTERED [None]
  - URTICARIA [None]
